FAERS Safety Report 7108590-5 (Version None)
Quarter: 2010Q4

REPORT INFORMATION
  Report Type: 
  Country: None (occurrence: None)
  Receive Date: 20101112
  Receipt Date: 20101104
  Transmission Date: 20110411
  Serious: Yes (Other)
  Sender: FDA-Public Use
  Company Number: 2010SP045997

PATIENT
  Age: 82 Year
  Sex: Female
  Weight: 42 kg

DRUGS (10)
  1. REMERON [Suspect]
     Indication: DEPRESSION
     Dosage: 22.5 MG;QD;PO , 30 MG;QD;PO , 37.5 MG;QD;PO ,  15 MG;QD;PO,  7.5 MG;QD;PO
     Route: 048
     Dates: start: 20091127, end: 20100121
  2. REMERON [Suspect]
     Indication: DEPRESSION
     Dosage: 22.5 MG;QD;PO , 30 MG;QD;PO , 37.5 MG;QD;PO ,  15 MG;QD;PO,  7.5 MG;QD;PO
     Route: 048
     Dates: start: 20100122, end: 20100204
  3. REMERON [Suspect]
     Indication: DEPRESSION
     Dosage: 22.5 MG;QD;PO , 30 MG;QD;PO , 37.5 MG;QD;PO ,  15 MG;QD;PO,  7.5 MG;QD;PO
     Route: 048
     Dates: start: 20100205, end: 20100401
  4. REMERON [Suspect]
     Indication: DEPRESSION
     Dosage: 22.5 MG;QD;PO , 30 MG;QD;PO , 37.5 MG;QD;PO ,  15 MG;QD;PO,  7.5 MG;QD;PO
     Route: 048
     Dates: start: 20100402, end: 20100415
  5. REMERON [Suspect]
     Indication: DEPRESSION
     Dosage: 22.5 MG;QD;PO , 30 MG;QD;PO , 37.5 MG;QD;PO ,  15 MG;QD;PO,  7.5 MG;QD;PO
     Route: 048
     Dates: start: 20100416, end: 20100429
  6. REMERON [Suspect]
     Indication: DEPRESSION
     Dosage: 22.5 MG;QD;PO , 30 MG;QD;PO , 37.5 MG;QD;PO ,  15 MG;QD;PO,  7.5 MG;QD;PO
     Route: 048
     Dates: start: 20100430, end: 20100902
  7. REMERON [Suspect]
     Indication: DEPRESSION
     Dosage: 22.5 MG;QD;PO , 30 MG;QD;PO , 37.5 MG;QD;PO ,  15 MG;QD;PO,  7.5 MG;QD;PO
     Route: 048
     Dates: start: 20100903, end: 20100916
  8. MIRTAZAPINE [Suspect]
     Indication: PRODUCT USED FOR UNKNOWN INDICATION
     Dosage: 15 MG;QD;PO
     Route: 048
     Dates: start: 20090925, end: 20091126
  9. DOGMATYL [Concomitant]
  10. SEPAZON [Concomitant]

REACTIONS (1)
  - TARDIVE DYSKINESIA [None]
